FAERS Safety Report 4818078-X (Version None)
Quarter: 2005Q4

REPORT INFORMATION
  Report Type: 
  Country: None (occurrence: None)
  Receive Date: 20051102
  Receipt Date: 20051007
  Transmission Date: 20060501
  Serious: Yes (Hospitalization, Disabling)
  Sender: FDA-Public Use
  Company Number: US-GLAXOSMITHKLINE-A0578493A

PATIENT
  Age: 28 Year
  Sex: Female
  Weight: 44.5 kg

DRUGS (3)
  1. WELLBUTRIN [Suspect]
     Indication: DRUG USE FOR UNKNOWN INDICATION
     Route: 048
  2. CONTRACEPTIVE [Concomitant]
     Route: 048
  3. ALCOHOL [Concomitant]

REACTIONS (2)
  - HALLUCINATION [None]
  - OVERDOSE [None]
